FAERS Safety Report 24694731 (Version 1)
Quarter: 2024Q4

REPORT INFORMATION
  Report Type: Spontaneous
  Country: FR (occurrence: FR)
  Receive Date: 20241204
  Receipt Date: 20241204
  Transmission Date: 20250114
  Serious: Yes (Other)
  Sender: AUROBINDO
  Company Number: FR-AFSSAPS-PA2024001774

PATIENT
  Age: 42 Year
  Sex: Male

DRUGS (1)
  1. EPHEDRINE [Suspect]
     Active Substance: EPHEDRINE
     Indication: Angiocardiogram
     Dosage: 6 MILLILITER
     Route: 042
     Dates: start: 20241010, end: 20241010

REACTIONS (1)
  - Tachycardia [Recovered/Resolved]

NARRATIVE: CASE EVENT DATE: 20241010
